FAERS Safety Report 20581836 (Version 1)
Quarter: 2022Q1

REPORT INFORMATION
  Report Type: Spontaneous
  Country: CA (occurrence: CA)
  Receive Date: 20220311
  Receipt Date: 20220311
  Transmission Date: 20220423
  Serious: Yes (Life-Threatening, Hospitalization, Other)
  Sender: FDA-Public Use
  Company Number: None

PATIENT
  Age: 10 Year
  Sex: Female
  Weight: 32 kg

DRUGS (10)
  1. CISPLATIN [Suspect]
     Active Substance: CISPLATIN
     Indication: Pinealoblastoma
     Dosage: ONCE?DOSE: 45.0 MILLIGRAM
     Route: 042
  2. CYCLOPHOSPHAMIDE [Suspect]
     Active Substance: CYCLOPHOSPHAMIDE
     Indication: Pinealoblastoma
     Dosage: DOSE: 600.0 MILLIGRAM
     Route: 042
  3. GRANULOCYTE COLONY-STIMULATING FACTOR NOS [Concomitant]
     Active Substance: GRANULOCYTE COLONY-STIMULATING FACTOR NOS
  4. ONDANSETRON [Concomitant]
     Active Substance: ONDANSETRON
  5. POLYETHYLENE GLYCOL [Concomitant]
     Active Substance: POLYETHYLENE GLYCOL
  6. SEPTRA [Concomitant]
     Active Substance: SULFAMETHOXAZOLE\TRIMETHOPRIM
     Dosage: PEDIATRIC SUSPENSION
     Route: 048
  7. VINCRISTINE SULFATE [Concomitant]
     Active Substance: VINCRISTINE SULFATE
  8. EMEND [Concomitant]
     Active Substance: APREPITANT
  9. OMEPRAZOLE [Concomitant]
     Active Substance: OMEPRAZOLE
  10. PENTAMIDINE ISETHIONATE [Concomitant]
     Active Substance: PENTAMIDINE ISETHIONATE
     Dosage: INJ 300MG/VIAL BP

REACTIONS (2)
  - Febrile neutropenia [Recovering/Resolving]
  - Colitis [Recovering/Resolving]
